FAERS Safety Report 6127255-X (Version None)
Quarter: 2009Q1

REPORT INFORMATION
  Report Type: 
  Country: None (occurrence: None)
  Receive Date: 20090319
  Receipt Date: 20090305
  Transmission Date: 20090719
  Serious: Yes (Hospitalization)
  Sender: FDA-Public Use
  Company Number: 02100-JPN-07-0092

PATIENT
  Age: 73 Year
  Sex: Male

DRUGS (7)
  1. PLETAL [Suspect]
     Indication: CEREBRAL INFARCTION
     Dosage: 100 MG, BID
     Route: 048
     Dates: start: 20070118
  2. AMLODIPINE (AMLDODIPINE) [Concomitant]
  3. ASPIRIN [Concomitant]
  4. DUTASTERIDE (DUTASTERIDE) [Concomitant]
  5. LOSARTAN POTASSIIUM  (LOSAR POTASSIUM) [Concomitant]
  6. CLOPIDOGREL [Concomitant]
  7. ARTEMISIAE ASIASTICA 95% ETHANOL EXT. (ARTEMISIAE ASIATICA 95% ETHANOL [Concomitant]

REACTIONS (1)
  - ANEURYSM [None]
